FAERS Safety Report 10480131 (Version 4)
Quarter: 2015Q4

REPORT INFORMATION
  Report Type: Report from Study
  Country: CA (occurrence: CA)
  Receive Date: 20140929
  Receipt Date: 20151103
  Transmission Date: 20160304
  Serious: Yes (Hospitalization)
  Sender: FDA-Public Use
  Company Number: CA-BIOGENIDEC-2014BI099422

PATIENT
  Age: 57 Year
  Sex: Female

DRUGS (1)
  1. AVONEX [Suspect]
     Active Substance: INTERFERON BETA-1A
     Indication: MULTIPLE SCLEROSIS
     Route: 030
     Dates: start: 20030220

REACTIONS (4)
  - Bradycardia [Recovered/Resolved]
  - Acute myocardial infarction [Recovered/Resolved]
  - Heart valve incompetence [Unknown]
  - Fatigue [Unknown]

NARRATIVE: CASE EVENT DATE: 201409
